FAERS Safety Report 4823418-1 (Version None)
Quarter: 2005Q4

REPORT INFORMATION
  Report Type: 
  Country: None (occurrence: None)
  Receive Date: 20051107
  Receipt Date: 20051020
  Transmission Date: 20060501
  Serious: Yes (Hospitalization)
  Sender: FDA-Public Use
  Company Number: 219127

PATIENT
  Age: 44 Year
  Sex: Male
  Weight: 48.2 kg

DRUGS (5)
  1. AVASTIN [Suspect]
     Indication: COLON CANCER
     Dosage: SEE IMAGE
     Route: 042
     Dates: start: 20050316
  2. OXALIPLATIN (OXALIPLATIN) [Suspect]
     Indication: COLON CANCER
     Dosage: 125 MG, Q2W, INTRAVENOUS
     Route: 042
     Dates: start: 20050316
  3. LEUCOVORIN CALCIUM [Suspect]
     Indication: COLON CANCER
     Dosage: 295 MG, Q2W, INTRAVENOUS
     Route: 042
     Dates: start: 20050516
  4. FLUOROURACIL [Suspect]
     Indication: COLON CANCER
     Dosage: 590 MG, Q2W, INTRAVENOUS
     Route: 042
     Dates: start: 20050316
  5. NIMESULIDE (NIMESULIDE) [Concomitant]

REACTIONS (6)
  - ABDOMINAL WALL ABSCESS [None]
  - BACK PAIN [None]
  - BACTERIAL INFECTION [None]
  - BACTEROIDES INFECTION [None]
  - ESCHERICHIA INFECTION [None]
  - PEPTOSTREPTOCOCCUS INFECTION [None]
